FAERS Safety Report 4413047-6 (Version None)
Quarter: 2004Q3

REPORT INFORMATION
  Report Type: 
  Country: None (occurrence: None)
  Receive Date: 20040730
  Receipt Date: 20040730
  Transmission Date: 20050211
  Serious: Yes (Hospitalization)
  Sender: FDA-Public Use
  Company Number: None

PATIENT
  Age: 88 Year
  Sex: Male
  Weight: 86.1834 kg

DRUGS (11)
  1. ASPIRIN [Suspect]
     Indication: CORONARY ARTERY DISEASE
     Dosage: 325 MG DAILY
     Dates: start: 20030401, end: 20040613
  2. ASPIRIN [Suspect]
     Indication: MYOCARDIAL INFARCTION
     Dosage: 325 MG DAILY
     Dates: start: 20030401, end: 20040613
  3. PROPOXYPHENE HCL AND ACETAMINOPHEN [Concomitant]
  4. ISOSORBIDE MONONITRATE [Concomitant]
  5. NITROGLYCERIN [Concomitant]
  6. FUROSEMIDE [Concomitant]
  7. LATANOPROST [Concomitant]
  8. ALBUTEROL /IPRATROP [Concomitant]
  9. POTASSIUM CHLORIDE [Concomitant]
  10. ALCOHOL PREP PAD [Concomitant]
  11. INSULIN SYRG [Concomitant]

REACTIONS (2)
  - LOWER GASTROINTESTINAL HAEMORRHAGE [None]
  - RECTAL HAEMORRHAGE [None]
